FAERS Safety Report 9789721 (Version 1)
Quarter: 2013Q4

REPORT INFORMATION
  Report Type: Spontaneous
  Country: GB (occurrence: None)
  Receive Date: 20131227
  Receipt Date: 20131227
  Transmission Date: 20140711
  Serious: Yes (Disabling, Other)
  Sender: FDA-Public Use
  Company Number: AUR-APL-2013-10680

PATIENT
  Age: 33 Year
  Sex: Male
  Weight: 59.8 kg

DRUGS (3)
  1. MIRTAZAPINE [Suspect]
     Indication: ANXIETY
     Dosage: 1 IN 1 D
     Route: 048
     Dates: start: 20130513, end: 20131101
  2. IBUPROFEN (IBUPROFEN) [Concomitant]
  3. PARACETAMOL (PARACETAMOL) [Concomitant]

REACTIONS (5)
  - Hypoaesthesia [None]
  - Paraesthesia [None]
  - Dysgeusia [None]
  - Hypoaesthesia oral [None]
  - Activities of daily living impaired [None]
